FAERS Safety Report 9424891 (Version 1)
Quarter: 2013Q3

REPORT INFORMATION
  Report Type: Spontaneous
  Country: US (occurrence: US)
  Receive Date: 20130729
  Receipt Date: 20130729
  Transmission Date: 20140515
  Serious: Yes (Other)
  Sender: FDA-Public Use
  Company Number: US-SPECTRUM PHARMACEUTICALS, INC.-13-F-US-00215

PATIENT
  Sex: Female
  Weight: 89.8 kg

DRUGS (2)
  1. FOLOTYN [Suspect]
     Indication: T-CELL LYMPHOMA
     Dosage: 38 MG, WEEKLY
     Route: 042
     Dates: end: 20130610
  2. FOLOTYN [Suspect]
     Dosage: 57 MG, WEEKLY
     Route: 042
     Dates: start: 20130415

REACTIONS (2)
  - Disease progression [Unknown]
  - Pyrexia [Unknown]
